FAERS Safety Report 21861736 (Version 2)
Quarter: 2023Q1

REPORT INFORMATION
  Report Type: Spontaneous
  Country: JP (occurrence: JP)
  Receive Date: 20230113
  Receipt Date: 20230217
  Transmission Date: 20230418
  Serious: Yes (Hospitalization, Disabling, Other)
  Sender: FDA-Public Use
  Company Number: JP-BAYER-2022A170441

PATIENT
  Age: 63 Year
  Sex: Male
  Weight: 44.5 kg

DRUGS (6)
  1. STIVARGA [Suspect]
     Active Substance: REGORAFENIB
     Indication: Rectal cancer
     Dosage: DAILY DOSE 120 MG
     Route: 048
     Dates: start: 20221114, end: 20221122
  2. STIVARGA [Suspect]
     Active Substance: REGORAFENIB
     Indication: Chemotherapy
  3. AMLODIPINE [Concomitant]
     Active Substance: AMLODIPINE BESYLATE
     Indication: Hypertension
     Dosage: DAILY DOSE 5 MG
     Dates: start: 20221107
  4. LANSOPRAZOLE [Concomitant]
     Active Substance: LANSOPRAZOLE
     Indication: Prophylaxis against gastrointestinal ulcer
     Dosage: DAILY DOSE 15 MG
     Dates: start: 20221107
  5. OLMESARTAN [Concomitant]
     Active Substance: OLMESARTAN
     Indication: Hypertension
     Dosage: DAILY DOSE 40 MG
     Dates: start: 20221107
  6. FERROUS CITRATE [Concomitant]
     Active Substance: FERROUS CITRATE
     Indication: Anaemia
     Dosage: DAILY DOSE 100 MG
     Dates: start: 20221107

REACTIONS (6)
  - Cerebral haemorrhage [Recovered/Resolved with Sequelae]
  - Subarachnoid haemorrhage [Recovered/Resolved]
  - Hemiplegia [None]
  - Aphasia [None]
  - Hypertension [Recovering/Resolving]
  - Off label use [None]

NARRATIVE: CASE EVENT DATE: 20221114
